FAERS Safety Report 13142935 (Version 1)
Quarter: 2017Q1

REPORT INFORMATION
  Report Type: Spontaneous
  Country: DE (occurrence: DE)
  Receive Date: 20170124
  Receipt Date: 20170124
  Transmission Date: 20170428
  Serious: Yes (Other)
  Sender: FDA-Public Use
  Company Number: DE-TEVA-730032GER

PATIENT
  Age: 70 Year
  Sex: Male
  Weight: 80 kg

DRUGS (1)
  1. ESOMEPRAZOLE [Suspect]
     Active Substance: ESOMEPRAZOLE
     Indication: GASTROOESOPHAGEAL REFLUX DISEASE
     Dosage: 40-0-20
     Route: 048
     Dates: start: 20160428

REACTIONS (7)
  - Vomiting [Recovered/Resolved]
  - Photosensitivity reaction [Recovered/Resolved]
  - Arrhythmia [Recovered/Resolved]
  - Extrasystoles [Recovered/Resolved]
  - Respiratory tract irritation [Recovered/Resolved]
  - Tachycardia [Recovered/Resolved]
  - Dyspnoea [Recovered/Resolved]

NARRATIVE: CASE EVENT DATE: 20160429
